FAERS Safety Report 7436479-0 (Version None)
Quarter: 2011Q2

REPORT INFORMATION
  Report Type: 
  Country: None (occurrence: None)
  Receive Date: 20110426
  Receipt Date: 20110418
  Transmission Date: 20111010
  Serious: No
  Sender: FDA-Public Use
  Company Number: US-BIOGENIDEC-2011BI014692

PATIENT
  Age: 62 Year
  Sex: Female

DRUGS (1)
  1. TYSABRI [Suspect]
     Indication: MULTIPLE SCLEROSIS
     Route: 042
     Dates: start: 20080424

REACTIONS (6)
  - PAIN IN EXTREMITY [None]
  - OEDEMA PERIPHERAL [None]
  - ARTHROPOD BITE [None]
  - PRURITUS [None]
  - HYPERSENSITIVITY [None]
  - IMMUNE SYSTEM DISORDER [None]
